FAERS Safety Report 5597865-7 (Version None)
Quarter: 2007Q4

REPORT INFORMATION
  Report Type: 
  Country: None (occurrence: None)
  Receive Date: 20071221
  Receipt Date: 20070828
  Transmission Date: 20080405
  Serious: Yes (Hospitalization)
  Sender: FDA-Public Use
  Company Number: US200708006124

PATIENT
  Sex: Female

DRUGS (4)
  1. HUMALOG [Suspect]
  2. HUMULIN N [Suspect]
     Dates: end: 20020101
  3. HUMULIN R [Suspect]
     Dates: end: 20020101
  4. LANTUS [Concomitant]

REACTIONS (5)
  - BLOOD GLUCOSE DECREASED [None]
  - BLOOD GLUCOSE FLUCTUATION [None]
  - HYPOACUSIS [None]
  - WEIGHT INCREASED [None]
  - WRONG DRUG ADMINISTERED [None]
